FAERS Safety Report 9305829 (Version 4)
Quarter: 2016Q2

REPORT INFORMATION
  Report Type: Spontaneous
  Country: US (occurrence: US)
  Receive Date: 20130523
  Receipt Date: 20160531
  Transmission Date: 20160815
  Serious: Yes (Hospitalization)
  Sender: FDA-Public Use
  Company Number: US-PFIZER INC-2013155161

PATIENT
  Age: 48 Year
  Sex: Male

DRUGS (2)
  1. BOSULIF [Suspect]
     Active Substance: BOSUTINIB MONOHYDRATE
     Dosage: 100 MG, UNK
     Dates: start: 20131104, end: 20160408
  2. BOSULIF [Suspect]
     Active Substance: BOSUTINIB MONOHYDRATE
     Indication: CHRONIC MYELOID LEUKAEMIA
     Dosage: 500 MG, 1X/DAY (FOR FIVE DAYS)
     Dates: start: 20130513

REACTIONS (7)
  - Anaemia [Unknown]
  - Pneumonitis [Unknown]
  - Diarrhoea [Unknown]
  - Pleural effusion [Unknown]
  - Pyrexia [Unknown]
  - Fatigue [Unknown]
  - Infection [Unknown]
